FAERS Safety Report 8218651-5 (Version None)
Quarter: 2012Q1

REPORT INFORMATION
  Report Type: 
  Country: None (occurrence: None)
  Receive Date: 20120319
  Receipt Date: 20120309
  Transmission Date: 20120608
  Serious: Yes (Hospitalization, Other)
  Sender: FDA-Public Use
  Company Number: PHFR2011GB05370

PATIENT
  Sex: Female

DRUGS (3)
  1. CLOZARIL [Suspect]
     Indication: SCHIZOPHRENIA
     Dosage: 100 MG, AM AND 400 MG, PM
     Route: 048
     Dates: start: 20050304
  2. MOVIPREP [Concomitant]
  3. CLOZARIL [Suspect]
     Dosage: 475 MG, QD
     Route: 048

REACTIONS (6)
  - FALL [None]
  - ANXIETY [None]
  - MYOCLONUS [None]
  - ANTIPSYCHOTIC DRUG LEVEL ABOVE THERAPEUTIC [None]
  - MUSCULAR WEAKNESS [None]
  - LIMB INJURY [None]
